FAERS Safety Report 9253028 (Version 3)
Quarter: 2013Q2

REPORT INFORMATION
  Report Type: Report from Study
  Country: US (occurrence: US)
  Receive Date: 20130424
  Receipt Date: 20130611
  Transmission Date: 20140414
  Serious: Yes (Hospitalization)
  Sender: FDA-Public Use
  Company Number: US-TEVA-400071USA

PATIENT
  Age: 9 Month
  Sex: Female
  Weight: 7.6 kg

DRUGS (17)
  1. LESTAURTINIB [Suspect]
     Indication: ACUTE LYMPHOCYTIC LEUKAEMIA
     Dates: end: 20130406
  2. LESTAURTINIB [Suspect]
     Dosage: DAYS 5-20
     Dates: start: 20130322, end: 20130406
  3. LESTAURTINIB [Suspect]
     Dates: end: 20130602
  4. CYTARABINE [Suspect]
     Indication: ACUTE LYMPHOCYTIC LEUKAEMIA
     Route: 037
     Dates: start: 20121217, end: 20130409
  5. CYTARABINE [Suspect]
     Route: 037
     Dates: end: 20130521
  6. CYTARABINE [Suspect]
     Route: 042
     Dates: end: 20130521
  7. HYDROCORTISONE [Suspect]
     Indication: ACUTE LYMPHOCYTIC LEUKAEMIA
     Route: 037
     Dates: start: 20121217, end: 20130409
  8. METHOTREXATE [Suspect]
     Indication: ACUTE LYMPHOCYTIC LEUKAEMIA
     Route: 037
     Dates: end: 20130409
  9. METHOTREXATE [Suspect]
     Route: 042
     Dates: end: 20130409
  10. METHOTREXATE [Suspect]
     Route: 042
     Dates: end: 20130424
  11. METHOTREXATE [Suspect]
     Route: 037
     Dates: end: 20130521
  12. CYCLOPHOSPHAMIDE [Suspect]
     Indication: ACUTE LYMPHOCYTIC LEUKAEMIA
     Dates: end: 20130505
  13. CYCLOPHOSPHAMIDE [Suspect]
     Dates: end: 20130507
  14. ETOPOSIDE [Suspect]
     Indication: ACUTE LYMPHOCYTIC LEUKAEMIA
     Dates: end: 20130506
  15. ETOPOSIDE [Suspect]
     Dates: end: 20130507
  16. FOLINIC ACID [Suspect]
     Indication: ACUTE LYMPHOCYTIC LEUKAEMIA
     Dates: end: 20130427
  17. PEGASPARGASE [Suspect]
     Indication: ACUTE LYMPHOCYTIC LEUKAEMIA
     Dates: end: 20130522

REACTIONS (6)
  - Hypokalaemia [Recovering/Resolving]
  - Alanine aminotransferase increased [Recovering/Resolving]
  - Stomatitis [Recovering/Resolving]
  - Febrile neutropenia [Recovering/Resolving]
  - Gastrointestinal disorder [Recovered/Resolved]
  - Infection [Not Recovered/Not Resolved]
